FAERS Safety Report 8538602-3 (Version None)
Quarter: 2012Q3

REPORT INFORMATION
  Report Type: 
  Country: None (occurrence: None)
  Receive Date: 20120726
  Receipt Date: 20120718
  Transmission Date: 20120928
  Serious: Yes (Hospitalization)
  Sender: FDA-Public Use
  Company Number: US-US-EMD SERONO, INC.-230479K07USA

PATIENT
  Sex: Male

DRUGS (2)
  1. REBIF [Suspect]
     Indication: MULTIPLE SCLEROSIS
     Route: 058
     Dates: start: 20050117, end: 20061114
  2. REBIF [Suspect]
     Route: 058
     Dates: start: 20061101

REACTIONS (2)
  - INFLUENZA LIKE ILLNESS [None]
  - PERIPHERAL ARTERY ANEURYSM [None]
